FAERS Safety Report 24212954 (Version 2)
Quarter: 2024Q3

REPORT INFORMATION
  Report Type: Spontaneous
  Country: GB (occurrence: GB)
  Receive Date: 20240815
  Receipt Date: 20240830
  Transmission Date: 20241016
  Serious: Yes (Death)
  Sender: MYLAN
  Company Number: GB-MYLANLABS-2024M1076011

PATIENT
  Age: 66 Year
  Sex: Male

DRUGS (1)
  1. CLOZARIL [Suspect]
     Active Substance: CLOZAPINE
     Indication: Psychotic symptom
     Dosage: 12.5 MILLIGRAM, QD (ONCE DAILY, APPROXIAMATE STOP DATE WAS REPORTED AS 06-AUG-2024)
     Route: 048
     Dates: start: 20230711, end: 202408

REACTIONS (4)
  - Dementia [Fatal]
  - Parkinson^s disease [Fatal]
  - Palliative care [Unknown]
  - Off label use [Unknown]

NARRATIVE: CASE EVENT DATE: 20230711
